FAERS Safety Report 19293312 (Version 1)
Quarter: 2021Q2

REPORT INFORMATION
  Report Type: Spontaneous
  Country: US (occurrence: US)
  Receive Date: 20210523
  Receipt Date: 20210523
  Transmission Date: 20210717
  Serious: No
  Sender: FDA-Public Use
  Company Number: None

PATIENT
  Sex: Male
  Weight: 110.7 kg

DRUGS (23)
  1. ZOFRAN 4 MG TAB [Concomitant]
  2. PROBIOTICS [Concomitant]
     Active Substance: PROBIOTICS NOS
  3. TAMSULOSIN 0.4 MG CAP [Concomitant]
  4. TRAMADOL 50 MG TAB [Concomitant]
  5. VITAMIN D3 [Concomitant]
     Active Substance: CHOLECALCIFEROL
  6. LEVOTHYROXINE 100 MG TAB [Concomitant]
  7. POTASSIUM GLUCONATE 595 MG [Concomitant]
  8. SYMBICORT [Concomitant]
     Active Substance: BUDESONIDE\FORMOTEROL FUMARATE DIHYDRATE
  9. INLYTA [Suspect]
     Active Substance: AXITINIB
     Indication: LUNG NEOPLASM MALIGNANT
     Route: 048
  10. INLYTA [Concomitant]
     Active Substance: AXITINIB
  11. SINGULAIR 10 MG TAB [Concomitant]
  12. ACETAMINOPHEN 325 MG TAB [Concomitant]
  13. VITAMIN B12 [Concomitant]
     Active Substance: CYANOCOBALAMIN
  14. INLYTA [Suspect]
     Active Substance: AXITINIB
     Indication: RENAL CANCER
     Route: 048
  15. AMLODIPINE 2.5 MG TAB [Concomitant]
  16. GLIPIZIDE 10 MG TAB [Concomitant]
  17. NUCALA [Concomitant]
     Active Substance: MEPOLIZUMAB
  18. OMEPRAZOLE 40 MG CAP [Concomitant]
  19. ALBUTEROL 2.5/3ML [Concomitant]
  20. LOMOTIL TAB [Concomitant]
  21. MECLIZINE 12.5 MG TAB [Concomitant]
  22. VENTOLIN HFA [Concomitant]
     Active Substance: ALBUTEROL SULFATE
  23. VITAMIN B7 [Concomitant]

REACTIONS (1)
  - Hospice care [None]
